FAERS Safety Report 21937604 (Version 1)
Quarter: 2023Q1

REPORT INFORMATION
  Report Type: Spontaneous
  Country: CA (occurrence: CA)
  Receive Date: 20230201
  Receipt Date: 20230201
  Transmission Date: 20230418
  Serious: Yes (Other)
  Sender: FDA-Public Use
  Company Number: CA-FreseniusKabi-FK202301000

PATIENT
  Age: 2 Day
  Sex: Male
  Weight: 3 kg

DRUGS (5)
  1. VANCOMYCIN HYDROCHLORIDE [Suspect]
     Active Substance: VANCOMYCIN HYDROCHLORIDE
     Indication: Congenital hydrocephalus
     Route: 065
  2. VANCOMYCIN HYDROCHLORIDE [Suspect]
     Active Substance: VANCOMYCIN HYDROCHLORIDE
     Indication: Endocarditis enterococcal
     Route: 065
  3. VANCOMYCIN HYDROCHLORIDE [Suspect]
     Active Substance: VANCOMYCIN HYDROCHLORIDE
     Dosage: 18.0 MG/KG
     Route: 042
  4. CEFTAZIDIME [Suspect]
     Active Substance: CEFTAZIDIME
     Indication: Congenital hydrocephalus
     Dosage: 50.0 MG/KG?DOSAGE FORM: POWDER FOR SOLUTION
     Route: 042
  5. GENTAMICIN [Suspect]
     Active Substance: GENTAMICIN
     Indication: Congenital hydrocephalus
     Dosage: 2.5 MG/KG
     Route: 042

REACTIONS (3)
  - CNS ventriculitis [Recovered/Resolved]
  - Pleocytosis [Recovered/Resolved]
  - Eosinophilia [Recovered/Resolved]
